FAERS Safety Report 5994574-7 (Version None)
Quarter: 2008Q4

REPORT INFORMATION
  Report Type: 
  Country: None (occurrence: None)
  Receive Date: 20081212
  Receipt Date: 20080909
  Transmission Date: 20090506
  Serious: No
  Sender: FDA-Public Use
  Company Number: US-ABBOTT-08P-163-0475442-00

PATIENT
  Sex: Female
  Weight: 78.088 kg

DRUGS (3)
  1. HUMIRA [Suspect]
     Indication: RHEUMATOID ARTHRITIS
     Route: 058
     Dates: start: 20071001
  2. METHOTREXATE [Concomitant]
     Indication: RHEUMATOID ARTHRITIS
     Route: 048
     Dates: start: 20071001
  3. FOLINIC ACID [Concomitant]
     Indication: MINERAL SUPPLEMENTATION
     Dosage: 6 TABLETS A WEEK
     Route: 048
     Dates: start: 20070501

REACTIONS (7)
  - BLOOD AMYLASE ABNORMAL [None]
  - BLOOD POTASSIUM DECREASED [None]
  - CHEST PAIN [None]
  - DYSPNOEA [None]
  - GASTROOESOPHAGEAL REFLUX DISEASE [None]
  - INJECTION SITE HAEMATOMA [None]
  - VITAMIN D DECREASED [None]
